FAERS Safety Report 13005923 (Version 1)
Quarter: 2016Q4

REPORT INFORMATION
  Report Type: Spontaneous
  Country: US (occurrence: US)
  Receive Date: 20161206
  Receipt Date: 20161206
  Transmission Date: 20170207
  Serious: No
  Sender: FDA-Public Use
  Company Number: None

PATIENT
  Age: 69 Year
  Sex: Female
  Weight: 74.25 kg

DRUGS (2)
  1. BENAZEPRIL 10MG TAB AMN [Suspect]
     Active Substance: BENAZEPRIL HYDROCHLORIDE
     Indication: BLOOD PRESSURE ABNORMAL
     Dosage: ?          QUANTITY:1 TABLET(S);?
     Route: 048
     Dates: start: 20161101, end: 20161116
  2. VITAMIN [Concomitant]
     Active Substance: VITAMINS

REACTIONS (5)
  - Hypertension [None]
  - Drug ineffective [None]
  - Malaise [None]
  - Nasopharyngitis [None]
  - Product substitution issue [None]

NARRATIVE: CASE EVENT DATE: 20161101
